FAERS Safety Report 11673788 (Version 1)
Quarter: 2015Q4

REPORT INFORMATION
  Report Type: Spontaneous
  Country: BE (occurrence: BE)
  Receive Date: 20151028
  Receipt Date: 20151028
  Transmission Date: 20160304
  Serious: Yes (Other)
  Sender: FDA-Public Use
  Company Number: BE-MYLANLABS-2015M1036605

PATIENT

DRUGS (2)
  1. GLIBENCLAMIDE [Suspect]
     Active Substance: GLYBURIDE
     Indication: PRODUCT USED FOR UNKNOWN INDICATION
     Dosage: 85 MG/DAY
     Route: 064
  2. GLIBENCLAMIDE [Suspect]
     Active Substance: GLYBURIDE
     Dosage: 90 MG/DAY
     Route: 064

REACTIONS (5)
  - Foetal exposure during pregnancy [Recovered/Resolved]
  - Exposure during breast feeding [Recovered/Resolved]
  - Premature baby [Unknown]
  - Foetal macrosomia [Recovered/Resolved]
  - Hypoglycaemia neonatal [Recovered/Resolved]
